FAERS Safety Report 7195537-9 (Version None)
Quarter: 2010Q4

REPORT INFORMATION
  Report Type: 
  Country: None (occurrence: None)
  Receive Date: 20101223
  Receipt Date: 20101004
  Transmission Date: 20110411
  Serious: No
  Sender: FDA-Public Use
  Company Number: US-AMGEN-KDL442949

PATIENT

DRUGS (8)
  1. ENBREL [Suspect]
     Indication: PRODUCT USED FOR UNKNOWN INDICATION
     Dosage: 50 MG, QWK
     Route: 058
  2. PREDNISONE [Concomitant]
     Dosage: 1 MG, UNK
  3. CETIRIZINE HYDROCHLORIDE [Concomitant]
     Dosage: 10 MG, UNK
  4. VALSARTAN/HYDROCHLOROTHIAZIDE [Concomitant]
     Dosage: UNK UNK, UNK
  5. FOLIC ACID [Concomitant]
     Dosage: 1 MG, UNK
  6. EZETIMIBE/SIMVASTATIN [Concomitant]
     Dosage: 10 MG, UNK
  7. ALFUZOSIN [Concomitant]
     Dosage: 10 MG, UNK
  8. METOPROLOL TARTRATE [Concomitant]
     Dosage: 100 MG, UNK

REACTIONS (2)
  - COUGH [None]
  - OROPHARYNGEAL PAIN [None]
